FAERS Safety Report 25938146 (Version 1)
Quarter: 2025Q4

REPORT INFORMATION
  Report Type: Spontaneous
  Country: JP (occurrence: JP)
  Receive Date: 20251018
  Receipt Date: 20251018
  Transmission Date: 20260117
  Serious: Yes (Other)
  Sender: ALKEM
  Company Number: JP-ALKEM LABORATORIES LIMITED-JP-ALKEM-2025-11115

PATIENT
  Age: 83 Year
  Sex: Male

DRUGS (7)
  1. LIDOCAINE [Suspect]
     Active Substance: LIDOCAINE
     Indication: Local anaesthesia
     Dosage: UNK
     Route: 065
  2. Adrenaline (Xylocaine) [Concomitant]
     Indication: Local anaesthesia
     Dosage: UNK
     Route: 065
  3. BENOXINATE HYDROCHLORIDE [Concomitant]
     Active Substance: BENOXINATE HYDROCHLORIDE
     Indication: Local anaesthesia
     Dosage: UNK
     Route: 065
  4. POVIDONE-IODINE [Concomitant]
     Active Substance: POVIDONE-IODINE
     Indication: Local anaesthesia
     Dosage: UNK
     Route: 065
  5. SALINE [Concomitant]
     Active Substance: SODIUM CHLORIDE
     Indication: Local anaesthesia
     Dosage: UNK
     Route: 065
  6. XALATAN [Concomitant]
     Active Substance: LATANOPROST
     Indication: Intraocular pressure increased
     Dosage: UNK
     Route: 065
  7. XALATAN [Concomitant]
     Active Substance: LATANOPROST
     Indication: Exfoliation glaucoma

REACTIONS (1)
  - Anaphylactic reaction [Unknown]
